FAERS Safety Report 5674693-5 (Version None)
Quarter: 2008Q1

REPORT INFORMATION
  Report Type: 
  Country: None (occurrence: None)
  Receive Date: 20080320
  Receipt Date: 20080317
  Transmission Date: 20080703
  Serious: Yes (Other)
  Sender: FDA-Public Use
  Company Number: B0511410A

PATIENT
  Age: 68 Year
  Sex: Female

DRUGS (15)
  1. PAXIL [Suspect]
     Indication: DEPRESSION
     Dosage: 10MG PER DAY
     Route: 048
     Dates: start: 20070914
  2. PAXIL [Suspect]
     Dosage: 20MG PER DAY
     Route: 048
     Dates: start: 20071226, end: 20080305
  3. DOGMATYL [Suspect]
     Indication: DRUG USE FOR UNKNOWN INDICATION
     Dates: start: 20070401, end: 20080305
  4. MYSLEE [Concomitant]
     Route: 048
  5. TAKEPRON [Concomitant]
  6. AMOBAN [Concomitant]
     Route: 048
  7. DEPAS [Concomitant]
     Route: 048
  8. THYRADIN [Concomitant]
     Route: 048
  9. CORTRIL [Concomitant]
  10. ZADITEN [Concomitant]
  11. FAMOTIDINE [Concomitant]
  12. ALOSENN [Concomitant]
     Route: 048
  13. GLYSENNID [Concomitant]
     Route: 048
  14. RINDERON [Concomitant]
  15. DESMOPRESSIN ACETATE [Concomitant]

REACTIONS (3)
  - PARKINSONISM [None]
  - SEROTONIN SYNDROME [None]
  - TREMOR [None]
